APPROVED DRUG PRODUCT: GLYBURIDE (MICRONIZED)
Active Ingredient: GLYBURIDE
Strength: 6MG
Dosage Form/Route: TABLET;ORAL
Application: N020055 | Product #003
Applicant: SANOFI AVENTIS US LLC
Approved: Mar 8, 2000 | RLD: No | RS: No | Type: DISCN